FAERS Safety Report 9372083 (Version 3)
Quarter: 2014Q1

REPORT INFORMATION
  Report Type: Spontaneous
  Country: US (occurrence: US)
  Receive Date: 20130627
  Receipt Date: 20140326
  Transmission Date: 20141002
  Serious: Yes (Death, Hospitalization)
  Sender: FDA-Public Use
  Company Number: US-BAYER-2013-078862

PATIENT
  Age: 21 Year
  Sex: Female
  Weight: 126.98 kg

DRUGS (11)
  1. YAZ [Suspect]
  2. YASMIN [Suspect]
     Dosage: UNK
     Dates: start: 20100128, end: 20120124
  3. OCELLA [Suspect]
     Dosage: UNK
     Dates: start: 20110112, end: 20120124
  4. ADVIL [Concomitant]
  5. DAYQUIL [DEXTROMET HBR,GUAIF,PARACET,PSEUDOEPH HCL] [Concomitant]
  6. ZITHROMAX [Concomitant]
     Indication: UPPER RESPIRATORY TRACT INFECTION
  7. Z-PAK [Concomitant]
  8. PROVENTIL [Concomitant]
  9. ERYTHROMYCIN [Concomitant]
  10. NEO-SYNEPHRINE [Concomitant]
  11. ALBUTEROL [Concomitant]

REACTIONS (3)
  - Cardiac failure [Fatal]
  - Respiratory failure [Fatal]
  - Pulmonary embolism [Fatal]
